FAERS Safety Report 5014126-5 (Version None)
Quarter: 2006Q2

REPORT INFORMATION
  Report Type: 
  Country: None (occurrence: None)
  Receive Date: 20060414
  Receipt Date: 20060206
  Transmission Date: 20061013
  Serious: No
  Sender: FDA-Public Use
  Company Number: 2006SP000638

PATIENT
  Age: 74 Year
  Sex: Female
  Weight: 48.0813 kg

DRUGS (5)
  1. LUNESTA [Suspect]
     Indication: INSOMNIA
     Dosage: 1 MG;HS;ORAL
     Route: 048
     Dates: start: 20060202, end: 20060205
  2. ATENOLOL [Concomitant]
  3. EYE MEDICATION [Concomitant]
  4. VITAMINS [Concomitant]
  5. MOBIC [Concomitant]

REACTIONS (3)
  - FATIGUE [None]
  - HYPOAESTHESIA ORAL [None]
  - PARADOXICAL DRUG REACTION [None]
